FAERS Safety Report 6832258-3 (Version None)
Quarter: 2010Q3

REPORT INFORMATION
  Report Type: 
  Country: None (occurrence: None)
  Receive Date: 20100707
  Receipt Date: 20100629
  Transmission Date: 20110219
  Serious: Yes (Death)
  Sender: FDA-Public Use
  Company Number: 2010US002585

PATIENT
  Age: 23 Year
  Sex: Female

DRUGS (6)
  1. PROGRAF [Suspect]
     Indication: HEART TRANSPLANT
     Dosage: 8 MG, /D
     Dates: start: 20080717
  2. PREDNISOLONE [Concomitant]
  3. MYCOPHENOLATE MOFETIL [Concomitant]
  4. CAPTOPRIL [Concomitant]
  5. FUROSEMIDE [Concomitant]
  6. TRIMETHOPRIM [Concomitant]

REACTIONS (1)
  - MYOCARDIAL INFARCTION [None]
